FAERS Safety Report 5718581-4 (Version None)
Quarter: 2008Q2

REPORT INFORMATION
  Report Type: 
  Country: None (occurrence: None)
  Receive Date: 20080425
  Receipt Date: 20080421
  Transmission Date: 20081010
  Serious: Yes (Other)
  Sender: FDA-Public Use
  Company Number: CA-ABBOTT-07P-028-0416981-00

PATIENT
  Weight: 44.038 kg

DRUGS (2)
  1. MAVIK [Suspect]
     Indication: HYPERTENSION
     Route: 048
     Dates: start: 20060921
  2. MAVIK [Suspect]

REACTIONS (1)
  - INGUINAL HERNIA, OBSTRUCTIVE [None]
